FAERS Safety Report 6593825-8 (Version None)
Quarter: 2010Q1

REPORT INFORMATION
  Report Type: 
  Country: None (occurrence: None)
  Receive Date: 20100218
  Receipt Date: 20100218
  Transmission Date: 20100710
  Serious: No
  Sender: FDA-Public Use
  Company Number: None

PATIENT
  Age: 59 Year
  Sex: Female
  Weight: 56.6996 kg

DRUGS (2)
  1. ZICAM ORAL SPRAY [Suspect]
     Indication: NASOPHARYNGITIS
     Dosage: AS DIRECTED ON BOX PO
     Route: 048
     Dates: start: 20080915, end: 20080917
  2. ZICAM [Concomitant]

REACTIONS (4)
  - ANOSMIA [None]
  - DEPRESSION [None]
  - DYSGEUSIA [None]
  - PAROSMIA [None]
